FAERS Safety Report 9538777 (Version 1)
Quarter: 2013Q2

REPORT INFORMATION
  Report Type: Spontaneous
  Country: US (occurrence: None)
  Receive Date: 20130517
  Receipt Date: 20130517
  Transmission Date: 20140414
  Serious: Yes (Hospitalization)
  Sender: FDA-Public Use
  Company Number: 2012PL000090

PATIENT
  Age: 70 Year
  Sex: Female

DRUGS (4)
  1. IMURAN (AZATHIOPRINE) [Suspect]
     Indication: PRODUCT USED FOR UNKNOWN INDICATION
  2. AMBRISENTAN [Suspect]
     Indication: PULMONARY HYPERTENSION
     Dates: start: 20110923
  3. AMBRISENTAN [Suspect]
     Indication: RHEUMATOID ARTHRITIS
     Dates: start: 20110923
  4. AMBRISENTAN [Suspect]
     Indication: INTERSTITIAL LUNG DISEASE
     Dates: start: 20110923

REACTIONS (1)
  - Pneumonia [None]
